FAERS Safety Report 5007813-6 (Version None)
Quarter: 2006Q2

REPORT INFORMATION
  Report Type: 
  Country: None (occurrence: None)
  Receive Date: 20060517
  Receipt Date: 20060511
  Transmission Date: 20061013
  Serious: Yes (Hospitalization, Other)
  Sender: FDA-Public Use
  Company Number: 2006040339

PATIENT
  Sex: Female
  Weight: 58.9676 kg

DRUGS (3)
  1. DILANTIN [Suspect]
     Indication: EPILEPSY
  2. NEURONTIN [Suspect]
     Indication: EPILEPSY
  3. LYRICA [Suspect]
     Indication: EPILEPSY

REACTIONS (14)
  - AMNESIA [None]
  - CENTRAL NERVOUS SYSTEM INFECTION [None]
  - CONVULSION [None]
  - COORDINATION ABNORMAL [None]
  - DRUG INEFFECTIVE [None]
  - DRUG TOXICITY [None]
  - FALL [None]
  - HEAD INJURY [None]
  - ILL-DEFINED DISORDER [None]
  - OSTEOMYELITIS [None]
  - POST PROCEDURAL COMPLICATION [None]
  - POSTOPERATIVE INFECTION [None]
  - STAPHYLOCOCCAL INFECTION [None]
  - THERAPY NON-RESPONDER [None]
